FAERS Safety Report 23118289 (Version 1)
Quarter: 2023Q4

REPORT INFORMATION
  Report Type: Spontaneous
  Country: HR (occurrence: HR)
  Receive Date: 20231028
  Receipt Date: 20231028
  Transmission Date: 20240110
  Serious: Yes (Death, Other)
  Sender: FDA-Public Use
  Company Number: HR-JNJFOC-20231060434

PATIENT

DRUGS (1)
  1. IMBRUVICA [Suspect]
     Active Substance: IBRUTINIB
     Indication: Chronic lymphocytic leukaemia
     Route: 048

REACTIONS (8)
  - Infection [Fatal]
  - Hypertension [Unknown]
  - Disease progression [Unknown]
  - Epilepsy [Unknown]
  - Haemorrhage [Unknown]
  - Rash [Unknown]
  - Diarrhoea [Unknown]
  - Arrhythmia [Unknown]
